FAERS Safety Report 14426964 (Version 1)
Quarter: 2018Q1

REPORT INFORMATION
  Report Type: Report from Study
  Country: DE (occurrence: DE)
  Receive Date: 20180123
  Receipt Date: 20180123
  Transmission Date: 20180509
  Serious: Yes (Death, Life-Threatening, Hospitalization)
  Sender: FDA-Public Use
  Company Number: PHHO2013DE016918

PATIENT
  Age: 71 Year
  Sex: Male
  Weight: 59.4 kg

DRUGS (2)
  1. EVEROLIMUS. [Suspect]
     Active Substance: EVEROLIMUS
     Indication: GASTRIC CANCER
     Dosage: 10 MG, QD (D1-D8)
     Route: 048
     Dates: start: 20131204, end: 20131228
  2. COMPARATOR PACLITAXEL [Suspect]
     Active Substance: PACLITAXEL
     Indication: GASTRIC CANCER
     Dosage: 80 MG/M2, QW (DAY 1, DAY 8 AND DAY 15)
     Route: 042
     Dates: start: 20131204, end: 20131218

REACTIONS (1)
  - Pneumocystis jirovecii pneumonia [Fatal]

NARRATIVE: CASE EVENT DATE: 20131224
